FAERS Safety Report 7077187-8 (Version None)
Quarter: 2010Q4

REPORT INFORMATION
  Report Type: 
  Country: None (occurrence: None)
  Receive Date: 20101101
  Receipt Date: 20101022
  Transmission Date: 20110411
  Serious: Yes (Other)
  Sender: FDA-Public Use
  Company Number: B0681948A

PATIENT
  Age: 54 Year
  Sex: Male

DRUGS (9)
  1. AVANDIA [Suspect]
     Route: 048
     Dates: start: 20050901, end: 20100906
  2. METFORMIN HCL [Concomitant]
     Route: 048
     Dates: start: 20050901
  3. AMIODARONA [Concomitant]
     Route: 048
     Dates: start: 20100330, end: 20100906
  4. CLOPIDOGREL [Concomitant]
     Route: 048
     Dates: start: 20090101
  5. RANITIDINA [Concomitant]
     Route: 065
     Dates: start: 20100330, end: 20100906
  6. ATORVASTATIN [Concomitant]
     Indication: ACUTE MYOCARDIAL INFARCTION
     Route: 048
     Dates: start: 20100330, end: 20100906
  7. ATENOLOL [Concomitant]
     Indication: ACUTE MYOCARDIAL INFARCTION
     Route: 048
     Dates: start: 20100330, end: 20100906
  8. FUROSEMIDA [Concomitant]
     Indication: ACUTE MYOCARDIAL INFARCTION
     Route: 048
     Dates: start: 20100330
  9. ACETYLSALICYLIC ACID [Concomitant]
     Route: 048
     Dates: start: 20090101

REACTIONS (1)
  - ACUTE CORONARY SYNDROME [None]
